FAERS Safety Report 11823950 (Version 2)
Quarter: 2015Q4

REPORT INFORMATION
  Report Type: Spontaneous
  Country: US (occurrence: US)
  Receive Date: 20151210
  Receipt Date: 20151224
  Transmission Date: 20160305
  Serious: Yes (Other)
  Sender: FDA-Public Use
  Company Number: US-BAUSCH-BL-2015-029494

PATIENT
  Age: 36 Day
  Sex: Male

DRUGS (1)
  1. METRONIDAZOLE. [Suspect]
     Active Substance: METRONIDAZOLE
     Indication: MATERNAL EXPOSURE TIMING UNSPECIFIED
     Route: 064

REACTIONS (8)
  - Asthenia [Recovered/Resolved]
  - Decreased activity [Recovered/Resolved]
  - Hypotonia [Recovered/Resolved]
  - White matter lesion [Recovered/Resolved]
  - Maternal drugs affecting foetus [Recovered/Resolved]
  - Hypothermia [Recovered/Resolved]
  - Bradycardia [Recovered/Resolved]
  - Failure to thrive [Recovered/Resolved]
